FAERS Safety Report 5358118-5 (Version None)
Quarter: 2007Q2

REPORT INFORMATION
  Report Type: 
  Country: None (occurrence: None)
  Receive Date: 20070530
  Receipt Date: 20061110
  Transmission Date: 20071010
  Serious: Yes (Hospitalization, Other)
  Sender: FDA-Public Use
  Company Number: US200608003973

PATIENT
  Age: 38 Year
  Sex: Female
  Weight: 77.1 kg

DRUGS (3)
  1. ZYPREXA [Suspect]
     Dosage: 5 MG, 2/D
     Dates: start: 19960101, end: 20050101
  2. ZIPRASIDONE HCL [Concomitant]
  3. BUPROPION (BUPRIOPION) [Concomitant]

REACTIONS (3)
  - BLOOD GLUCOSE INCREASED [None]
  - DIABETES MELLITUS [None]
  - DIABETIC COMA [None]
